FAERS Safety Report 18242064 (Version 2)
Quarter: 2020Q4

REPORT INFORMATION
  Report Type: Report from Study
  Country: None (occurrence: US)
  Receive Date: 20200908
  Receipt Date: 20201124
  Transmission Date: 20210113
  Serious: Yes (Hospitalization, Other)
  Sender: FDA-Public Use
  Company Number: US-INSMED, INC.-US-INS-19-02552

PATIENT
  Age: 52 Year
  Sex: Female

DRUGS (4)
  1. ETHAMBUTOL [Concomitant]
     Active Substance: ETHAMBUTOL HYDROCHLORIDE
     Indication: PRODUCT USED FOR UNKNOWN INDICATION
  2. PLAQUENIL [Concomitant]
     Active Substance: HYDROXYCHLOROQUINE SULFATE
     Indication: PRODUCT USED FOR UNKNOWN INDICATION
  3. ARIKAYCE [Suspect]
     Active Substance: AMIKACIN
     Indication: MYCOBACTERIUM AVIUM COMPLEX INFECTION
     Route: 055
     Dates: start: 201907
  4. AZITHROMYCIN ANHYDROUS. [Concomitant]
     Active Substance: AZITHROMYCIN ANHYDROUS
     Indication: PRODUCT USED FOR UNKNOWN INDICATION

REACTIONS (8)
  - Cyst rupture [Unknown]
  - Heart rate increased [Unknown]
  - Adverse drug reaction [Unknown]
  - Hospitalisation [Unknown]
  - Knee arthroplasty [Unknown]
  - Dysphonia [Not Recovered/Not Resolved]
  - Therapy interrupted [Unknown]
  - Pulmonary function test decreased [Unknown]

NARRATIVE: CASE EVENT DATE: 202004
